FAERS Safety Report 9455332 (Version 1)
Quarter: 2013Q3

REPORT INFORMATION
  Report Type: Spontaneous
  Country: FR (occurrence: FR)
  Receive Date: 20130813
  Receipt Date: 20130813
  Transmission Date: 20140515
  Serious: Yes (Hospitalization)
  Sender: FDA-Public Use
  Company Number: FR-JNJFOC-20130805497

PATIENT
  Age: 44 Year
  Sex: Male

DRUGS (3)
  1. IXPRIM [Suspect]
     Indication: PAIN
     Route: 048
     Dates: start: 20130605, end: 20130611
  2. FLAGYL [Suspect]
     Indication: PROPHYLAXIS
     Route: 048
     Dates: start: 20130605, end: 20130606
  3. CIFLOX (CIPROFLOXACINE) [Concomitant]
     Indication: PROPHYLAXIS
     Route: 048
     Dates: start: 20130606, end: 20130606

REACTIONS (1)
  - Drug eruption [Recovered/Resolved]
